FAERS Safety Report 5565904-5 (Version None)
Quarter: 2007Q4

REPORT INFORMATION
  Report Type: 
  Country: None (occurrence: None)
  Receive Date: 20071213
  Receipt Date: 20071129
  Transmission Date: 20080405
  Serious: Yes (Death, Other)
  Sender: FDA-Public Use
  Company Number: 100#08#2007-05073

PATIENT
  Age: 45 Year
  Sex: Female

DRUGS (2)
  1. METHADONE HCL [Suspect]
     Indication: DRUG USE FOR UNKNOWN INDICATION
  2. SERTRALINE [Suspect]
     Indication: DRUG USE FOR UNKNOWN INDICATION

REACTIONS (3)
  - DIABETIC KETOACIDOSIS [None]
  - DRUG TOXICITY [None]
  - INTENTIONAL OVERDOSE [None]
